FAERS Safety Report 18924626 (Version 2)
Quarter: 2022Q2

REPORT INFORMATION
  Report Type: Spontaneous
  Country: US (occurrence: US)
  Receive Date: 20210222
  Receipt Date: 20220421
  Transmission Date: 20220720
  Serious: Yes (Death, Other)
  Sender: FDA-Public Use
  Company Number: US-PFIZER INC-2019480484

PATIENT
  Age: 1 Year
  Sex: Female

DRUGS (2)
  1. LORBRENA [Suspect]
     Active Substance: LORLATINIB
     Indication: Adrenal gland cancer
     Dosage: 25 MG, DAILY
  2. LORBRENA [Suspect]
     Active Substance: LORLATINIB
     Indication: Stem cell transplant
     Dosage: 50 MG, DAILY
     Dates: start: 20191113

REACTIONS (3)
  - Death [Fatal]
  - Off label use [Unknown]
  - Off label use [Unknown]
